FAERS Safety Report 9654180 (Version 1)
Quarter: 2013Q4

REPORT INFORMATION
  Report Type: Spontaneous
  Country: US (occurrence: US)
  Receive Date: 20131029
  Receipt Date: 20131029
  Transmission Date: 20140711
  Serious: Yes (Other)
  Sender: FDA-Public Use
  Company Number: US-TEVA-440297USA

PATIENT
  Sex: Male

DRUGS (1)
  1. WARFARIN [Suspect]

REACTIONS (7)
  - Transient ischaemic attack [Unknown]
  - Feeling drunk [Unknown]
  - Asthenia [Unknown]
  - Confusional state [Unknown]
  - Fatigue [Unknown]
  - Gait disturbance [Unknown]
  - Syncope [Unknown]
